FAERS Safety Report 7205463-4 (Version None)
Quarter: 2010Q4

REPORT INFORMATION
  Report Type: 
  Country: None (occurrence: None)
  Receive Date: 20101231
  Receipt Date: 20101228
  Transmission Date: 20110411
  Serious: Yes (Death)
  Sender: FDA-Public Use
  Company Number: PHEH2007US16431

PATIENT
  Sex: Female

DRUGS (4)
  1. EXJADE [Suspect]
     Dosage: 500 MG, UNK
     Route: 048
  2. LASIX [Concomitant]
     Dosage: 40 UNK, UNK
     Route: 048
  3. FOLATE SODIUM [Concomitant]
     Dosage: 1 UNK, UNK
     Route: 048
  4. METOPROLOL [Concomitant]
     Dosage: 25 UNK, UNK
     Route: 048

REACTIONS (1)
  - DEATH [None]
